FAERS Safety Report 8357166-0 (Version None)
Quarter: 2012Q2

REPORT INFORMATION
  Report Type: 
  Country: None (occurrence: None)
  Receive Date: 20120514
  Receipt Date: 20120509
  Transmission Date: 20120825
  Serious: Yes (Hospitalization)
  Sender: FDA-Public Use
  Company Number: DE-ROCHE-1021081

PATIENT
  Sex: Female
  Weight: 62.4 kg

DRUGS (4)
  1. PACLITAXEL [Suspect]
     Route: 042
     Dates: start: 20100111, end: 20100111
  2. PACLITAXEL [Suspect]
     Indication: METASTASES TO LIVER
     Route: 042
     Dates: start: 20100104
  3. AVASTIN [Suspect]
     Indication: METASTASES TO LIVER
     Route: 042
     Dates: start: 20100104
  4. AVASTIN [Suspect]
     Route: 042
     Dates: start: 20100111

REACTIONS (3)
  - HYPERSENSITIVITY [None]
  - OEDEMA [None]
  - PYREXIA [None]
